FAERS Safety Report 8913315 (Version 3)
Quarter: 2013Q2

REPORT INFORMATION
  Report Type: Spontaneous
  Country: US (occurrence: US)
  Receive Date: 20121119
  Receipt Date: 20130423
  Transmission Date: 20140414
  Serious: Yes (Death, Hospitalization, Other)
  Sender: FDA-Public Use
  Company Number: US-ASTELLAS-2012US011104

PATIENT
  Age: 60 Year
  Sex: Female
  Weight: 93 kg

DRUGS (15)
  1. PROGRAF [Suspect]
     Indication: LIVER TRANSPLANT
     Dosage: 2 MG IN THE MORNING AND 1 MG IN THE EVENING
     Route: 048
     Dates: start: 20101004, end: 201210
  2. ANTIBIOTICS [Suspect]
     Indication: ABDOMINAL INFECTION
     Dosage: UNK
     Route: 065
  3. CELLCEPT                           /01275102/ [Concomitant]
     Indication: LIVER TRANSPLANT
     Dosage: UNK
     Route: 065
  4. FLORINEF [Concomitant]
     Indication: PRODUCT USED FOR UNKNOWN INDICATION
     Dosage: UNK
     Route: 065
  5. BABY ASPIRIN [Concomitant]
     Indication: PRODUCT USED FOR UNKNOWN INDICATION
     Dosage: UNK
     Route: 065
  6. ALLOPURINOL [Concomitant]
     Indication: PRODUCT USED FOR UNKNOWN INDICATION
     Dosage: UNK
     Route: 065
  7. PRILOSEC                           /00661201/ [Concomitant]
     Indication: PRODUCT USED FOR UNKNOWN INDICATION
     Dosage: UNK
     Route: 065
  8. METFORMIN [Concomitant]
     Indication: PRODUCT USED FOR UNKNOWN INDICATION
     Dosage: UNK
     Route: 065
  9. VASOTEC                            /00574902/ [Concomitant]
     Indication: PRODUCT USED FOR UNKNOWN INDICATION
     Dosage: UNK
     Route: 065
  10. PROZAC [Concomitant]
     Indication: PRODUCT USED FOR UNKNOWN INDICATION
     Dosage: UNK
     Route: 065
  11. SIMVASTATIN [Concomitant]
     Indication: PRODUCT USED FOR UNKNOWN INDICATION
     Dosage: UNK
     Route: 065
  12. BYSTOLIC [Concomitant]
     Indication: PRODUCT USED FOR UNKNOWN INDICATION
     Dosage: UNK
     Route: 065
  13. GLYBURIDE [Concomitant]
     Indication: PRODUCT USED FOR UNKNOWN INDICATION
     Dosage: UNK
     Route: 065
  14. AMITRIPTYLINE [Concomitant]
     Indication: PRODUCT USED FOR UNKNOWN INDICATION
     Dosage: UNK
     Route: 065
  15. SYNTHROID [Concomitant]
     Indication: PRODUCT USED FOR UNKNOWN INDICATION
     Dosage: UNK
     Route: 065

REACTIONS (26)
  - Bile duct adenocarcinoma [Fatal]
  - Pancreatic carcinoma [Fatal]
  - Transfusion [Unknown]
  - Portal hypertensive gastropathy [Unknown]
  - Arteriovenous malformation [Unknown]
  - Hysterectomy [Unknown]
  - Renal failure acute [Unknown]
  - Hypertension [Unknown]
  - Diabetes mellitus [Unknown]
  - Peritonitis bacterial [Unknown]
  - Metastases to abdominal cavity [Unknown]
  - Hepatic failure [Unknown]
  - Dyspnoea [Unknown]
  - Dehydration [Unknown]
  - Herpes zoster [Unknown]
  - Urinary tract infection [Unknown]
  - Hypothyroidism [Unknown]
  - Haemorrhoids [Unknown]
  - Gastrointestinal erosion [Unknown]
  - Vaginal haemorrhage [Unknown]
  - Hypophagia [Unknown]
  - Depression [Unknown]
  - Constipation [Unknown]
  - Vomiting [Unknown]
  - Nausea [Unknown]
  - Weight decreased [Unknown]
